FAERS Safety Report 15077176 (Version 5)
Quarter: 2023Q2

REPORT INFORMATION
  Report Type: Report from Study
  Country: US (occurrence: US)
  Receive Date: 20180627
  Receipt Date: 20230626
  Transmission Date: 20230722
  Serious: Yes (Hospitalization, Disabling, Other)
  Sender: FDA-Public Use
  Company Number: US-SA-2017SA069481

PATIENT
  Age: 35 Year
  Sex: Male

DRUGS (7)
  1. ALGLUCOSIDASE ALFA [Suspect]
     Active Substance: ALGLUCOSIDASE ALFA
     Indication: Glycogen storage disease type II
     Dosage: 2400 (UNITS NOT PROVIDED), FREQUENCY-Q2
     Route: 041
     Dates: start: 20170329
  2. LISINOPRIL [Suspect]
     Active Substance: LISINOPRIL
     Indication: Cardiac failure
     Dosage: UNK
  3. TYLENOL [Concomitant]
     Active Substance: ACETAMINOPHEN
     Dosage: UNK
  4. BENADRYL [Concomitant]
     Active Substance: DIPHENHYDRAMINE HYDROCHLORIDE
     Dosage: UNK
  5. ACETAMINOPHEN [Concomitant]
     Active Substance: ACETAMINOPHEN
     Indication: Premedication
     Dosage: UNK
  6. DIPHENHYDRAMINE [Concomitant]
     Active Substance: DIPHENHYDRAMINE
     Indication: Premedication
     Dosage: 10 MG
  7. DIPHENHYDRAMINE [Concomitant]
     Active Substance: DIPHENHYDRAMINE
     Indication: Loss of consciousness
     Dosage: 20 MG

REACTIONS (30)
  - Loss of consciousness [Recovered/Resolved]
  - Dizziness [Recovered/Resolved]
  - Pyrexia [Recovered/Resolved]
  - Asthenia [Recovered/Resolved]
  - Urticaria [Recovered/Resolved]
  - Hyperhidrosis [Unknown]
  - Haemorrhage [Not Recovered/Not Resolved]
  - Mobility decreased [Unknown]
  - Muscular weakness [Unknown]
  - Cardiac failure [Unknown]
  - Chest pain [Unknown]
  - Dyspnoea [Unknown]
  - Constipation [Unknown]
  - Illness [Unknown]
  - Poor venous access [Unknown]
  - Pain in extremity [Not Recovered/Not Resolved]
  - Animal bite [Not Recovered/Not Resolved]
  - Gait disturbance [Not Recovered/Not Resolved]
  - Nausea [Unknown]
  - Feeling hot [Unknown]
  - Myalgia [Unknown]
  - Muscle discomfort [Unknown]
  - Pain in jaw [Recovered/Resolved]
  - Troponin increased [Recovered/Resolved]
  - Dehydration [Unknown]
  - Hypertension [Unknown]
  - Blood pressure increased [Unknown]
  - Abdominal pain upper [Unknown]
  - Hypersensitivity [Unknown]
  - Sleep disorder [Unknown]

NARRATIVE: CASE EVENT DATE: 20170101
